FAERS Safety Report 9186744 (Version 1)
Quarter: 2012Q4

REPORT INFORMATION
  Report Type: Report from Study
  Country: CA (occurrence: CA)
  Receive Date: 20121102
  Receipt Date: 20121102
  Transmission Date: 20130627
  Serious: Yes (Hospitalization)
  Sender: FDA-Public Use
  Company Number: CA-JNJFOC-20121013091

PATIENT
  Age: 55 None
  Sex: Male
  Weight: 85.5 kg

DRUGS (1)
  1. REMICADE [Suspect]
     Indication: CROHN^S DISEASE
     Route: 042
     Dates: start: 20120330

REACTIONS (4)
  - Hepatic enzyme increased [Recovering/Resolving]
  - Kidney infection [Recovering/Resolving]
  - Tachycardia [Recovering/Resolving]
  - Nasopharyngitis [Recovering/Resolving]
